FAERS Safety Report 21681913 (Version 2)
Quarter: 2022Q4

REPORT INFORMATION
  Report Type: Report from Study
  Country: AU (occurrence: AU)
  Receive Date: 20221205
  Receipt Date: 20221213
  Transmission Date: 20230113
  Serious: Yes (Death, Hospitalization)
  Sender: FDA-Public Use
  Company Number: AU-002147023-NVSC2022AU280960

PATIENT
  Sex: Female

DRUGS (1)
  1. PIQRAY [Suspect]
     Active Substance: ALPELISIB
     Indication: Neoplasm malignant
     Dosage: 150 MG (200 MG, 28 TABS)
     Route: 048
     Dates: start: 20221022

REACTIONS (2)
  - Breast cancer metastatic [Fatal]
  - Hepatic failure [Unknown]

NARRATIVE: CASE EVENT DATE: 20221112
